FAERS Safety Report 24231065 (Version 1)
Quarter: 2024Q3

REPORT INFORMATION
  Report Type: Spontaneous
  Country: BE (occurrence: None)
  Receive Date: 20240821
  Receipt Date: 20240821
  Transmission Date: 20241016
  Serious: Yes (Hospitalization, Other)
  Sender: ASTRAZENECA
  Company Number: 2024A187053

PATIENT
  Age: 81 Year
  Sex: Male

DRUGS (12)
  1. DAPAGLIFLOZIN [Suspect]
     Active Substance: DAPAGLIFLOZIN
     Indication: Cardiac failure
     Dosage: MORNING
     Route: 048
     Dates: start: 202401
  2. DUTASTERIDE\TAMSULOSIN [Concomitant]
     Active Substance: DUTASTERIDE\TAMSULOSIN
  3. TRESIBA [Concomitant]
     Active Substance: INSULIN DEGLUDEC
     Dosage: 200 UNITS/ML, AT NOON
  4. MELATONIN [Concomitant]
     Active Substance: MELATONIN
     Dosage: 8 PM
  5. L-THYROXINE CHRISTIANS [Concomitant]
     Dosage: 8 AM
  6. CALCIUM CARBONATE [Concomitant]
     Active Substance: CALCIUM CARBONATE
  7. BUMETANIDE [Concomitant]
     Active Substance: BUMETANIDE
     Dosage: 8 AM
  8. ASPIRIN [Concomitant]
     Active Substance: ASPIRIN
     Dosage: 8 AM
  9. BISOPROLOL [Concomitant]
     Active Substance: BISOPROLOL\BISOPROLOL FUMARATE
     Dosage: 8 AM
  10. BUMETANIDE [Concomitant]
     Active Substance: BUMETANIDE
     Dosage: 8 AM
  11. CABOMETYX [Concomitant]
     Active Substance: CABOZANTINIB S-MALATE
     Dosage: 8 AM ; 1X/ 2 DAYS
     Dates: start: 2021
  12. ENTRESTO [Concomitant]
     Active Substance: SACUBITRIL\VALSARTAN
     Dosage: 49 MG/51 MG , 8 AM / 6 PM

REACTIONS (1)
  - Anal abscess [Recovering/Resolving]
